FAERS Safety Report 4750313-9 (Version None)
Quarter: 2005Q3

REPORT INFORMATION
  Report Type: 
  Country: None (occurrence: None)
  Receive Date: 20050818
  Receipt Date: 20050805
  Transmission Date: 20060218
  Serious: Yes (Hospitalization, Other)
  Sender: FDA-Public Use
  Company Number: 2005JP001575

PATIENT
  Age: 10 Year
  Sex: Female

DRUGS (2)
  1. PROGRAF [Suspect]
     Indication: LIVER TRANSPLANT
  2. STEROID [Concomitant]

REACTIONS (9)
  - ASCITES [None]
  - ENTEROCOLITIS [None]
  - HAEMODIALYSIS [None]
  - HEPATIC FUNCTION ABNORMAL [None]
  - LYMPHADENOPATHY [None]
  - MULTI-ORGAN FAILURE [None]
  - NON-HODGKIN'S LYMPHOMA [None]
  - RENAL FAILURE [None]
  - RESPIRATORY FAILURE [None]
